FAERS Safety Report 9847416 (Version 1)
Quarter: 2014Q1

REPORT INFORMATION
  Report Type: Report from Study
  Country: US (occurrence: US)
  Receive Date: 20140127
  Receipt Date: 20140127
  Transmission Date: 20141002
  Serious: No
  Sender: FDA-Public Use
  Company Number: US-GILEAD-2014-0092721

PATIENT
  Age: 57 Year
  Sex: Male

DRUGS (3)
  1. SOFOSBUVIR [Suspect]
     Indication: CHRONIC HEPATITIS C
     Dosage: 400 MG, UNK
     Route: 065
     Dates: start: 20140113
  2. RIBAVIRIN [Suspect]
     Indication: CHRONIC HEPATITIS C
     Route: 065
  3. PEGINTERFERON [Suspect]
     Indication: CHRONIC HEPATITIS C
     Route: 058

REACTIONS (1)
  - Influenza like illness [Recovered/Resolved]
